FAERS Safety Report 5869519-0 (Version None)
Quarter: 2008Q3

REPORT INFORMATION
  Report Type: 
  Country: None (occurrence: None)
  Receive Date: 20080828
  Receipt Date: 20080826
  Transmission Date: 20090109
  Serious: Yes (Hospitalization)
  Sender: FDA-Public Use
  Company Number: IDA-00057

PATIENT
  Age: 63 Year
  Sex: Male
  Weight: 94 kg

DRUGS (2)
  1. DOCITON (PROPRANOLOL HYDROCHLORIDE; ASTRAZENECA) [Suspect]
     Indication: PORTAL HYPERTENSION
     Dosage: 20 MG BID
     Dates: start: 20041013, end: 20041116
  2. IRBESARTAN [Suspect]
     Indication: PORTAL HYPERTENSION
     Dosage: EVERY MORNING

REACTIONS (1)
  - OESOPHAGEAL VARICES HAEMORRHAGE [None]
